FAERS Safety Report 20459766 (Version 1)
Quarter: 2022Q1

REPORT INFORMATION
  Report Type: Report from Study
  Country: US (occurrence: US)
  Receive Date: 20220211
  Receipt Date: 20220211
  Transmission Date: 20220423
  Serious: Yes (Hospitalization)
  Sender: FDA-Public Use
  Company Number: US-JAZZ-2021-US-002709

PATIENT
  Age: 17 Year
  Sex: Male
  Weight: 46.8 kg

DRUGS (8)
  1. ASPARAGINASE ERWINIA CHRYSANTHEMI [Suspect]
     Active Substance: ASPARAGINASE ERWINIA CHRYSANTHEMI
     Indication: T-cell type acute leukaemia
     Dosage: 56 MILLIGRAM, 3XWEEKLY PER 2W COURSE
     Route: 030
     Dates: start: 20201111, end: 20201123
  2. ASPARAGINASE ERWINIA CHRYSANTHEMI [Suspect]
     Active Substance: ASPARAGINASE ERWINIA CHRYSANTHEMI
     Dosage: 3XWEEKLY PER 2W COURSE
     Route: 030
     Dates: start: 20201221, end: 20210125
  3. ASPARAGINASE ERWINIA CHRYSANTHEMI [Suspect]
     Active Substance: ASPARAGINASE ERWINIA CHRYSANTHEMI
     Dosage: 56 MILLIGRAM, 3XWEEKLY PER 2W COURSE
     Route: 030
     Dates: start: 20210203, end: 20210205
  4. VINCRISTINE [Concomitant]
     Active Substance: VINCRISTINE
     Dosage: 1 MILLIGRAM, SINGLE
     Route: 042
     Dates: start: 20210203, end: 20210203
  5. METHOTREXATE [Concomitant]
     Active Substance: METHOTREXATE
     Dosage: 300 MILLIGRAM, SINGLE
     Route: 042
     Dates: start: 20210203, end: 20210203
  6. ONDANSETRON [Concomitant]
     Active Substance: ONDANSETRON
     Dosage: 12 MILLIGRAM, SINGLE
     Route: 042
     Dates: start: 20210203, end: 20210203
  7. LIDOCAINE [Concomitant]
     Active Substance: LIDOCAINE
     Dosage: 4% CREAM, ONCE PER DAY TOPICAL PRIOR TO RC-P INFECTION
     Route: 061
     Dates: start: 20210203, end: 20210208
  8. MEGESTROL [Concomitant]
     Active Substance: MEGESTROL
     Dosage: 600 MILLIGRAM, QD
     Route: 048
     Dates: start: 20210204, end: 20210208

REACTIONS (2)
  - Hyperammonaemia [Recovered/Resolved]
  - Encephalopathy [Recovered/Resolved]

NARRATIVE: CASE EVENT DATE: 20210206
